FAERS Safety Report 7928869-4 (Version None)
Quarter: 2011Q4

REPORT INFORMATION
  Report Type: 
  Country: None (occurrence: None)
  Receive Date: 20111118
  Receipt Date: 20111110
  Transmission Date: 20120403
  Serious: Yes (Hospitalization, Other)
  Sender: FDA-Public Use
  Company Number: US-GILEAD-2011-0039321

PATIENT
  Age: 25 Year
  Sex: Female

DRUGS (5)
  1. ACETAMINOPHEN [Concomitant]
     Dates: start: 20110127, end: 20110130
  2. MEDROXYPROGESTERONE [Concomitant]
     Indication: CONTRACEPTION
     Dates: start: 20100614, end: 20110127
  3. PREDNISOLONE [Concomitant]
     Dates: start: 20110127, end: 20110130
  4. EMTRICITABINE/TENOFOVIR DISOPROXIL FUMARATE [Suspect]
     Indication: HIV INFECTION
     Dates: start: 20100322, end: 20110223
  5. CIPRO [Concomitant]
     Dates: start: 20110127, end: 20110202

REACTIONS (2)
  - ABORTION SPONTANEOUS [None]
  - MALARIA [None]
